FAERS Safety Report 25591074 (Version 1)
Quarter: 2025Q3

REPORT INFORMATION
  Report Type: Spontaneous
  Country: US (occurrence: None)
  Receive Date: 20250721
  Receipt Date: 20250721
  Transmission Date: 20251021
  Serious: Yes (Death)
  Sender: FDA-CTU
  Company Number: None

PATIENT
  Age: 95 Year
  Sex: Female

DRUGS (5)
  1. ERIVEDGE [Suspect]
     Active Substance: VISMODEGIB
     Indication: Neoplasm skin
     Dosage: FREQUENCY : DAILY;?
     Route: 048
     Dates: start: 20250329, end: 20250702
  2. VITAMINS [Concomitant]
     Active Substance: VITAMINS
  3. VITAMIN C 1000 MG [Concomitant]
  4. VITAMIN D 1000 [Concomitant]
  5. DILTIAZEM 30MG ORAL TABLETS [Concomitant]

REACTIONS (1)
  - Skin cancer [None]

NARRATIVE: CASE EVENT DATE: 20250702
